FAERS Safety Report 20619186 (Version 5)
Quarter: 2022Q3

REPORT INFORMATION
  Report Type: Report from Study
  Country: CN (occurrence: CN)
  Receive Date: 20220322
  Receipt Date: 20220829
  Transmission Date: 20221026
  Serious: Yes (Hospitalization)
  Sender: FDA-Public Use
  Company Number: CN-NOVARTISPH-NVSC2022CN059087

PATIENT
  Age: 39 Year
  Sex: Male
  Weight: 72 kg

DRUGS (8)
  1. FINGOLIMOD [Suspect]
     Active Substance: FINGOLIMOD
     Indication: Relapsing multiple sclerosis
     Dosage: UNK
     Route: 048
     Dates: start: 20211013
  2. CALTRATE WITH VITAMIN D [Concomitant]
     Active Substance: CALCIUM CARBONATE\CHOLECALCIFEROL
     Indication: Mineral supplementation
     Dosage: UNK
     Route: 065
     Dates: start: 20210922
  3. ACIPIMOX [Concomitant]
     Active Substance: ACIPIMOX
     Indication: Hyperlipidaemia
     Dosage: UNK
     Route: 065
     Dates: start: 20220304, end: 20220307
  4. LEUCOGEN [Concomitant]
     Active Substance: LEUCOGEN
     Indication: Leukopenia
     Dosage: UNK
     Route: 065
     Dates: start: 20220304, end: 20220307
  5. POTASSIUM CITRATE [Concomitant]
     Active Substance: POTASSIUM CITRATE
     Indication: Prophylaxis
     Dosage: UNK
     Route: 065
     Dates: start: 20220314, end: 20220330
  6. ACEGLUTAMIDE [Concomitant]
     Active Substance: ACEGLUTAMIDE
     Indication: Relapsing multiple sclerosis
     Dosage: UNK
     Route: 065
     Dates: start: 20220303, end: 20220307
  7. BETAHISTINE HYDROCHLORIDE [Concomitant]
     Active Substance: BETAHISTINE HYDROCHLORIDE
     Indication: Relapsing multiple sclerosis
     Dosage: UNK
     Route: 065
     Dates: start: 20220303, end: 20220307
  8. GASTRODIN [Concomitant]
     Active Substance: GASTRODIN
     Indication: Relapsing multiple sclerosis
     Dosage: UNK
     Route: 065
     Dates: start: 20220306, end: 20220307

REACTIONS (1)
  - Acute disseminated encephalomyelitis [Recovered/Resolved]

NARRATIVE: CASE EVENT DATE: 20220314
